FAERS Safety Report 16479014 (Version 1)
Quarter: 2019Q2

REPORT INFORMATION
  Report Type: Not Available
  Country: US (occurrence: US)
  Receive Date: 20190626
  Receipt Date: 20190626
  Transmission Date: 20190711
  Serious: Yes (Other)
  Sender: FDA-Public Use
  Company Number: US-NEUROCRINE BIOSCIENCES INC.-2019NBI01621

PATIENT
  Sex: Male

DRUGS (11)
  1. LISINOPRIL. [Concomitant]
     Active Substance: LISINOPRIL
  2. LASIX [Concomitant]
     Active Substance: FUROSEMIDE
  3. TAGAMET [Concomitant]
     Active Substance: CIMETIDINE
  4. ADDERALL [Concomitant]
     Active Substance: AMPHETAMINE ASPARTATE\AMPHETAMINE SULFATE\DEXTROAMPHETAMINE SACCHARATE\DEXTROAMPHETAMINE SULFATE
  5. ASPIRIN. [Concomitant]
     Active Substance: ASPIRIN
  6. PROCARDIA [Concomitant]
     Active Substance: NIFEDIPINE
  7. ATORVASTATIN [Concomitant]
     Active Substance: ATORVASTATIN
  8. INGREZZA [Suspect]
     Active Substance: VALBENAZINE
     Indication: TARDIVE DYSKINESIA
     Route: 048
     Dates: start: 20180607
  9. ISORDIL [Concomitant]
     Active Substance: ISOSORBIDE DINITRATE
  10. BYDUREON [Concomitant]
     Active Substance: EXENATIDE
  11. HUMULIN NOS [Concomitant]
     Active Substance: INSULIN HUMAN

REACTIONS (1)
  - Angina pectoris [Recovered/Resolved]
